FAERS Safety Report 13642099 (Version 3)
Quarter: 2017Q4

REPORT INFORMATION
  Report Type: Report from Study
  Country: LV (occurrence: LV)
  Receive Date: 20170612
  Receipt Date: 20171011
  Transmission Date: 20180320
  Serious: Yes (Death)
  Sender: FDA-Public Use
  Company Number: LV-CELGENEUS-LVA-2016117202

PATIENT
  Age: 60 Year
  Sex: Female

DRUGS (3)
  1. MPDL3280A (ATEZOLIZUMAB) [Suspect]
     Active Substance: ATEZOLIZUMAB
     Indication: BREAST CANCER METASTATIC
     Route: 042
     Dates: start: 20161004, end: 20161018
  2. ABRAXANE [Suspect]
     Active Substance: PACLITAXEL
     Indication: BREAST CANCER METASTATIC
     Dosage: 100 MG/M2
     Route: 042
     Dates: start: 20161004, end: 20161004
  3. ORNITHINE ASPARTATE [Concomitant]
     Active Substance: ORNITHINE ASPARTATE
     Indication: HEPATIC ENZYME INCREASED
     Route: 065
     Dates: start: 20160923

REACTIONS (1)
  - Death [Fatal]

NARRATIVE: CASE EVENT DATE: 20161101
